FAERS Safety Report 23878016 (Version 2)
Quarter: 2024Q3

REPORT INFORMATION
  Report Type: Spontaneous
  Country: US (occurrence: None)
  Receive Date: 20240521
  Receipt Date: 20240702
  Transmission Date: 20241016
  Serious: No
  Sender: ASTRAZENECA
  Company Number: 2024A112821

PATIENT
  Age: 25627 Day
  Sex: Male

DRUGS (1)
  1. FASENRA [Suspect]
     Active Substance: BENRALIZUMAB
     Route: 058

REACTIONS (10)
  - Illness [Unknown]
  - Depression [Unknown]
  - Asthma [Unknown]
  - Wheezing [Unknown]
  - Secretion discharge [Unknown]
  - Hypersensitivity [Unknown]
  - Dyspnoea [Unknown]
  - Malaise [Unknown]
  - Emotional disorder [Unknown]
  - Intentional dose omission [Unknown]

NARRATIVE: CASE EVENT DATE: 20231210
